FAERS Safety Report 6001280-1 (Version None)
Quarter: 2008Q4

REPORT INFORMATION
  Report Type: 
  Country: None (occurrence: None)
  Receive Date: 20081215
  Receipt Date: 20071104
  Transmission Date: 20090506
  Serious: No
  Sender: FDA-Public Use
  Company Number: US-AMGEN-KDL251109

PATIENT
  Sex: Female

DRUGS (3)
  1. ENBREL [Suspect]
     Indication: RHEUMATOID ARTHRITIS
     Route: 058
     Dates: start: 20041101
  2. PLAQUENIL [Concomitant]
     Route: 048
     Dates: start: 20020101
  3. METHOTREXATE [Concomitant]
     Route: 048
     Dates: start: 20050101

REACTIONS (3)
  - FAILURE OF IMPLANT [None]
  - PAIN [None]
  - RHEUMATOID ARTHRITIS [None]
